FAERS Safety Report 25425199 (Version 1)
Quarter: 2025Q2

REPORT INFORMATION
  Report Type: Spontaneous
  Country: US (occurrence: US)
  Receive Date: 20250611
  Receipt Date: 20250611
  Transmission Date: 20250717
  Serious: Yes (Hospitalization, Other)
  Sender: CSL BEHRING
  Company Number: US-BEH-2025208803

PATIENT
  Age: 25 Year
  Sex: Male

DRUGS (2)
  1. HUMATE-P [Suspect]
     Active Substance: HUMAN COAGULATION FACTOR VIII/VON WILLEBRAND FACTOR COMPLEX
     Indication: Factor VIII deficiency
     Route: 042
     Dates: start: 202409
  2. SODIUM CHLORIDE [Concomitant]
     Active Substance: SODIUM CHLORIDE

REACTIONS (4)
  - Appendicitis [Unknown]
  - Abdominal pain [Unknown]
  - Haemorrhage [Recovering/Resolving]
  - Haemarthrosis [Unknown]

NARRATIVE: CASE EVENT DATE: 20250528
